FAERS Safety Report 8795209 (Version 2)
Quarter: 2015Q3

REPORT INFORMATION
  Report Type: Report from Study
  Country: US (occurrence: US)
  Receive Date: 20120917
  Receipt Date: 20150729
  Transmission Date: 20151125
  Serious: Yes (Death)
  Sender: FDA-Public Use
  Company Number: US-ROCHE-1129276

PATIENT
  Sex: Male

DRUGS (5)
  1. ARANESP [Concomitant]
     Active Substance: DARBEPOETIN ALFA
     Route: 065
  2. AVASTIN [Suspect]
     Active Substance: BEVACIZUMAB
     Indication: PANCREATIC CARCINOMA
     Route: 065
     Dates: start: 20070626
  3. PEGFILGRASTIM [Concomitant]
     Active Substance: PEGFILGRASTIM
     Route: 058
  4. BENADRYL [Concomitant]
     Active Substance: DIPHENHYDRAMINE HYDROCHLORIDE
     Route: 065
  5. TYLENOL [Concomitant]
     Active Substance: ACETAMINOPHEN
     Route: 048

REACTIONS (2)
  - Death [Fatal]
  - Off label use [Unknown]
